FAERS Safety Report 5156798-0 (Version None)
Quarter: 2006Q4

REPORT INFORMATION
  Report Type: 
  Country: None (occurrence: None)
  Receive Date: 20061115
  Receipt Date: 20061031
  Transmission Date: 20070319
  Serious: Yes (Hospitalization)
  Sender: FDA-Public Use
  Company Number: 14829

PATIENT
  Age: 64 Year
  Sex: Male

DRUGS (8)
  1. PACLITAXEL [Suspect]
     Indication: NON-SMALL CELL LUNG CANCER
     Dosage: 215 MG PER_CYCLE
     Dates: start: 20060816, end: 20060816
  2. CARBOPLATIN [Suspect]
     Dosage: 650 MG PER_CYCLE
     Dates: start: 20060816, end: 20060816
  3. QUINAPRIL HCL [Concomitant]
  4. ATENOLOL [Concomitant]
  5. SIMVASTATIN [Concomitant]
  6. ACETYLSALICYLIC ACID SRT [Concomitant]
  7. METOCLOPRAMIDE [Concomitant]
  8. DMXAA [Suspect]
     Indication: NON-SMALL CELL LUNG CANCER
     Dosage: 2880 MG PER_CYCLE IV
     Route: 042
     Dates: start: 20060426, end: 20060918

REACTIONS (9)
  - ASTHENIA [None]
  - DYSPNOEA EXERTIONAL [None]
  - FATIGUE [None]
  - HAEMOGLOBIN DECREASED [None]
  - HAEMOPTYSIS [None]
  - INJECTION SITE EXTRAVASATION [None]
  - NEUTROPENIC SEPSIS [None]
  - PLATELET COUNT DECREASED [None]
  - PRODUCTIVE COUGH [None]
